FAERS Safety Report 12867171 (Version 1)
Quarter: 2016Q4

REPORT INFORMATION
  Report Type: Spontaneous
  Country: US (occurrence: US)
  Receive Date: 20161020
  Receipt Date: 20161020
  Transmission Date: 20170207
  Serious: No
  Sender: FDA-Public Use
  Company Number: US-JAZZ-2016-US-014810

PATIENT
  Sex: Female

DRUGS (13)
  1. ESTRACE [Concomitant]
     Active Substance: ESTRADIOL
  2. ENBREL [Concomitant]
     Active Substance: ETANERCEPT
  3. XYREM [Suspect]
     Active Substance: SODIUM OXYBATE
     Dosage: DOSE ADJUSTMENTS
     Route: 048
     Dates: start: 200407, end: 201110
  4. XYREM [Suspect]
     Active Substance: SODIUM OXYBATE
     Indication: NARCOLEPSY
     Dosage: 2.25 G, BID
     Route: 048
     Dates: start: 200406, end: 200407
  5. PROPRANOLOL [Concomitant]
     Active Substance: PROPRANOLOL\PROPRANOLOL HYDROCHLORIDE
  6. ACZONE [Concomitant]
     Active Substance: DAPSONE
  7. XYREM [Suspect]
     Active Substance: SODIUM OXYBATE
     Dosage: 3.25 G, BID
     Route: 048
     Dates: start: 201110
  8. METHOTREXATE. [Concomitant]
     Active Substance: METHOTREXATE
  9. CLOBETASOL [Concomitant]
     Active Substance: CLOBETASOL
  10. RETINAVITES [Concomitant]
  11. MELOXICAM. [Concomitant]
     Active Substance: MELOXICAM
  12. TRAZODONE [Concomitant]
     Active Substance: TRAZODONE HYDROCHLORIDE
  13. ZOLOFT [Concomitant]
     Active Substance: SERTRALINE HYDROCHLORIDE

REACTIONS (2)
  - Hormone level abnormal [Unknown]
  - Anxiety [Unknown]
